FAERS Safety Report 20112651 (Version 1)
Quarter: 2021Q4

REPORT INFORMATION
  Report Type: Spontaneous
  Country: FR (occurrence: FR)
  Receive Date: 20211125
  Receipt Date: 20211125
  Transmission Date: 20220303
  Serious: Yes (Death, Hospitalization, Other)
  Sender: FDA-Public Use
  Company Number: None

PATIENT
  Age: 85 Year
  Sex: Female
  Weight: 49 kg

DRUGS (8)
  1. PIPERACILLIN [Suspect]
     Active Substance: PIPERACILLIN
     Indication: Infection
     Dosage: 4 G, Q3D
     Route: 042
     Dates: start: 20210915, end: 20210924
  2. CALCIUM CARBONATE [Suspect]
     Active Substance: CALCIUM CARBONATE
     Indication: Hypovitaminosis
     Dosage: 2 DF, QD
     Route: 048
     Dates: start: 20210916, end: 20211005
  3. ACETAMINOPHEN [Suspect]
     Active Substance: ACETAMINOPHEN
     Indication: Pyrexia
     Dosage: 1 G, QD
     Route: 048
     Dates: start: 20210908, end: 20211002
  4. ENOXAPARIN SODIUM [Suspect]
     Active Substance: ENOXAPARIN SODIUM
     Indication: Thrombosis prophylaxis
     Dosage: 4000 IU, QD
     Route: 058
     Dates: start: 20210916, end: 20210921
  5. NOVORAPID [Suspect]
     Active Substance: INSULIN ASPART
     Indication: Hypovitaminosis
     Dosage: 2 IU, CYCLICAL
     Route: 058
     Dates: start: 20210914, end: 20211005
  6. TAZOBACTAM [Suspect]
     Active Substance: TAZOBACTAM
     Indication: Infection
     Dosage: 4 G, Q3D
     Route: 042
     Dates: start: 20210915, end: 20210924
  7. TRANSIPEG (PEG3350\ELECTROLYTES) [Suspect]
     Active Substance: POLYETHYLENE GLYCOL 3350\POTASSIUM CHLORIDE\SODIUM BICARBONATE\SODIUM CHLORIDE\SODIUM SULFATE
     Indication: Constipation
     Dosage: 1 DF, QD
     Route: 048
     Dates: start: 20211003, end: 20211013
  8. LENALIDOMIDE [Suspect]
     Active Substance: LENALIDOMIDE
     Indication: Follicular lymphoma
     Dosage: 15 MG, QD
     Route: 048
     Dates: start: 20210930, end: 20211020

REACTIONS (1)
  - Toxic epidermal necrolysis [Fatal]

NARRATIVE: CASE EVENT DATE: 20211013
